FAERS Safety Report 5536329-3 (Version None)
Quarter: 2007Q4

REPORT INFORMATION
  Report Type: 
  Country: None (occurrence: None)
  Receive Date: 20071206
  Receipt Date: 20071128
  Transmission Date: 20080405
  Serious: Yes (Other)
  Sender: FDA-Public Use
  Company Number: JP-PFIZER INC-2007098385

PATIENT
  Sex: Female

DRUGS (3)
  1. NORVASC [Suspect]
     Route: 048
  2. NORVASC [Suspect]
     Route: 048
  3. IMIDAPRIL HYDROCHLORIDE [Concomitant]
     Route: 048

REACTIONS (1)
  - HALLUCINATION, AUDITORY [None]
